FAERS Safety Report 20866956 (Version 3)
Quarter: 2022Q2

REPORT INFORMATION
  Report Type: Spontaneous
  Country: SK (occurrence: None)
  Receive Date: 20220524
  Receipt Date: 20220603
  Transmission Date: 20220720
  Serious: Yes (Death)
  Sender: FDA-Public Use
  Company Number: SK-Merck Healthcare KGaA-9323698

PATIENT
  Sex: Female

DRUGS (12)
  1. MAVENCLAD [Suspect]
     Active Substance: CLADRIBINE
     Indication: Multiple sclerosis
     Dosage: YEAR ONE CYCLE ONE THERAPY
     Dates: start: 20220103, end: 20220107
  2. MAVENCLAD [Suspect]
     Active Substance: CLADRIBINE
     Dosage: YEAR ONE CYCLE TWO THERAPY
     Dates: start: 20220131, end: 20220204
  3. MIRTAZAPINE [Concomitant]
     Active Substance: MIRTAZAPINE
     Indication: Product used for unknown indication
  4. MEDOFLUCON [Concomitant]
     Indication: Product used for unknown indication
  5. BISEPTOL [Concomitant]
     Active Substance: SULFAMETHOXAZOLE\TRIMETHOPRIM
     Indication: Product used for unknown indication
  6. ESCITALOPRAM [Concomitant]
     Active Substance: ESCITALOPRAM OXALATE
     Indication: Product used for unknown indication
  7. SERTRALINE HYDROCHLORIDE [Concomitant]
     Active Substance: SERTRALINE HYDROCHLORIDE
     Indication: Product used for unknown indication
  8. OMEPRAZOLE [Concomitant]
     Active Substance: OMEPRAZOLE
     Indication: Product used for unknown indication
  9. NADROPARIN CALCIUM [Concomitant]
     Active Substance: NADROPARIN CALCIUM
     Indication: Product used for unknown indication
  10. MEDOCLAV [AMOXICILLIN SODIUM;CLAVULANATE POTASSIUM] [Concomitant]
     Indication: Product used for unknown indication
  11. BROMAZEPAM [Concomitant]
     Active Substance: BROMAZEPAM
     Indication: Product used for unknown indication
  12. NUTRICOMP [VITAMINS NOS] [Concomitant]
     Indication: Product used for unknown indication

REACTIONS (1)
  - Multiple sclerosis [Fatal]
